FAERS Safety Report 8008862-6 (Version None)
Quarter: 2011Q4

REPORT INFORMATION
  Report Type: 
  Country: None (occurrence: None)
  Receive Date: 20111227
  Receipt Date: 20111220
  Transmission Date: 20120403
  Serious: Yes (Life-Threatening, Hospitalization, Other)
  Sender: FDA-Public Use
  Company Number: JP-CEPHALON-2011004688

PATIENT
  Sex: Female
  Weight: 48 kg

DRUGS (16)
  1. ACYCLOVIR [Concomitant]
  2. LOXOPROFEN SODIUM [Concomitant]
     Dates: start: 20110225, end: 20110922
  3. REBAMIPIDE [Concomitant]
  4. ETIZOLAM [Concomitant]
  5. SULFAMETHOXAZOLE AND TRIMETHOPRIM [Concomitant]
  6. MAGNESIUM OXIDE [Concomitant]
  7. RILMAZAFONE HYDROCHLORIDE [Concomitant]
     Dates: start: 20110323
  8. SENNOSIDE [Concomitant]
     Dates: start: 20110707, end: 20110709
  9. FAMOTIDINE [Concomitant]
  10. ITRACONAZOLE [Concomitant]
     Dates: end: 20110608
  11. POVIDONE IODINE [Concomitant]
  12. URSODIOL [Concomitant]
     Dates: start: 20110622
  13. BENDAMUSTINE HCL [Suspect]
     Indication: B-CELL LYMPHOMA
     Route: 042
     Dates: start: 20110203
  14. RITUXIMAB [Suspect]
     Indication: B-CELL LYMPHOMA
     Route: 042
     Dates: start: 20110225
  15. GRANISETRON HCL [Concomitant]
     Dates: start: 20110203, end: 20110922
  16. CLEMASTINE FUMARATE [Concomitant]
     Dates: start: 20110225, end: 20110922

REACTIONS (9)
  - LIVER DISORDER [None]
  - OEDEMA PERIPHERAL [None]
  - PANCYTOPENIA [None]
  - HYPOGAMMAGLOBULINAEMIA [None]
  - WHITE BLOOD CELL COUNT DECREASED [None]
  - PLATELET COUNT DECREASED [None]
  - SWELLING [None]
  - BLOOD LACTATE DEHYDROGENASE DECREASED [None]
  - LYMPHOCYTE COUNT DECREASED [None]
